FAERS Safety Report 5019370-9 (Version None)
Quarter: 2006Q2

REPORT INFORMATION
  Report Type: 
  Country: None (occurrence: None)
  Receive Date: 20060606
  Receipt Date: 20051215
  Transmission Date: 20061013
  Serious: Yes (Hospitalization)
  Sender: FDA-Public Use
  Company Number: US-AMGEN-US160419

PATIENT
  Sex: Male
  Weight: 74 kg

DRUGS (8)
  1. EPOGEN [Suspect]
     Indication: DIALYSIS
     Dates: start: 20040901
  2. SENSIPAR [Concomitant]
     Route: 065
     Dates: start: 20050620
  3. CARTIA XT [Concomitant]
     Dates: start: 20050827
  4. WARFARIN SODIUM [Concomitant]
     Dates: start: 20050311
  5. NEPHRO-CAPS [Concomitant]
     Dates: start: 20050309
  6. DIGOXIN [Concomitant]
     Dates: start: 20050225
  7. RENAGEL [Concomitant]
  8. TRENTAL [Concomitant]
     Dates: start: 20050712

REACTIONS (2)
  - SMALL INTESTINAL OBSTRUCTION [None]
  - THERAPEUTIC RESPONSE DECREASED [None]
